FAERS Safety Report 9081096 (Version 1)
Quarter: 2013Q1

REPORT INFORMATION
  Report Type: Report from Study
  Country: US (occurrence: US)
  Receive Date: 20130130
  Receipt Date: 20130130
  Transmission Date: 20140127
  Serious: No
  Sender: FDA-Public Use
  Company Number: US-ABBOTT-12P-163-0954573-00

PATIENT
  Age: 69 Year
  Sex: Female

DRUGS (5)
  1. HUMIRA 40 MG/0.8 ML PEN [Suspect]
     Indication: CROHN^S DISEASE
     Dates: start: 20120608, end: 20120913
  2. HUMIRA 40 MG/0.8 ML PEN [Suspect]
     Dates: start: 20120914
  3. VIT D [Concomitant]
     Indication: MINERAL SUPPLEMENTATION
     Dosage: 2000MG DAILY
  4. IMODIUM AD [Concomitant]
     Indication: DIARRHOEA
  5. ADVAIR [Concomitant]
     Indication: BRONCHITIS

REACTIONS (6)
  - Diarrhoea [Not Recovered/Not Resolved]
  - Drug ineffective [Not Recovered/Not Resolved]
  - Drug ineffective [Not Recovered/Not Resolved]
  - Dry mouth [Not Recovered/Not Resolved]
  - Productive cough [Not Recovered/Not Resolved]
  - Injection site pain [Not Recovered/Not Resolved]
